FAERS Safety Report 15050492 (Version 12)
Quarter: 2019Q3

REPORT INFORMATION
  Report Type: Spontaneous
  Country: CA (occurrence: CA)
  Receive Date: 20180622
  Receipt Date: 20190905
  Transmission Date: 20191004
  Serious: Yes (Hospitalization, Other)
  Sender: FDA-Public Use
  Company Number: CA-CELLTRION INC.-2018CA020830

PATIENT

DRUGS (29)
  1. INFLECTRA [Suspect]
     Active Substance: INFLIXIMAB-DYYB
     Dosage: 600 MG (10 MG/KG) RELOAD ON WEEK 0, 2, 6, THEN EVERY 8 WEEKS
     Route: 042
     Dates: start: 20180714
  2. LYRICA [Concomitant]
     Active Substance: PREGABALIN
     Dosage: 75 MG, 2X/DAY
     Route: 048
     Dates: start: 2018
  3. INFLECTRA [Suspect]
     Active Substance: INFLIXIMAB-DYYB
     Dosage: 300 MG EVERY 0, 2, 6 WEEKS (RE-INDUCTION) THEN EVERY 8 WEEKS
     Route: 042
     Dates: start: 20190624, end: 20190624
  4. LYRICA [Concomitant]
     Active Substance: PREGABALIN
     Dosage: 75 MG, DAILY
     Route: 048
  5. BUDESONIDE. [Concomitant]
     Active Substance: BUDESONIDE
     Dosage: 30 MG, DAILY FOR 2 WEEKS
     Route: 048
     Dates: end: 20180906
  6. INFLECTRA [Suspect]
     Active Substance: INFLIXIMAB-DYYB
     Dosage: 300 MG EVERY 0, 2, 6 WEEKS (RE-INDUCTION) THEN EVERY 8 WEEKS
     Route: 042
     Dates: start: 20190610
  7. ASACOL [Concomitant]
     Active Substance: MESALAMINE
     Dosage: 4.8 G/DAY IN 3 DIVIDED DOSES
  8. POLYETHYLENE GLYCOL 3350. [Concomitant]
     Active Substance: POLYETHYLENE GLYCOL 3350
     Dosage: 17 G, 2X/DAY(3350)
     Route: 048
     Dates: start: 2018
  9. INFLECTRA [Suspect]
     Active Substance: INFLIXIMAB-DYYB
     Dosage: 600 MG (10 MG/KG) RELOAD ON WEEK0, WEEK 2,6, THEN EVERY 8 WEEKS
     Route: 042
     Dates: start: 20180827
  10. ASACOL [Concomitant]
     Active Substance: MESALAMINE
     Dosage: 4.8 G/DAY IN 3 DIVIDED DOSES
  11. HYDROMORPHONE                      /00080902/ [Concomitant]
     Active Substance: HYDROMORPHONE HYDROCHLORIDE
     Dosage: UNK
     Route: 065
  12. CALCIUM CARBONATE. [Concomitant]
     Active Substance: CALCIUM CARBONATE
     Dosage: 1250 MG, 2X/DAY
     Route: 048
     Dates: start: 2018
  13. VITAMIN D [COLECALCIFEROL] [Concomitant]
     Active Substance: CHOLECALCIFEROL
     Dosage: 1000 IU, DAILY
     Route: 048
     Dates: start: 2018
  14. MELATONIN [Concomitant]
     Active Substance: MELATONIN
     Dosage: 5 MG, DAILY BEFORE BEDTIME
     Route: 060
     Dates: start: 2018
  15. SLOW-K [Concomitant]
     Active Substance: POTASSIUM CHLORIDE
     Dosage: 2000 MG, DAILY
     Route: 048
     Dates: start: 2018
  16. INFLECTRA [Suspect]
     Active Substance: INFLIXIMAB-DYYB
     Indication: CROHN^S DISEASE
     Dosage: 300 MG (5 MG/KG) EVERY 0, 2, 6 WEEKS, THEN EVERY 8 WEEKS
     Route: 042
     Dates: start: 20180515, end: 20180527
  17. METRONIDAZOLE                      /00012502/ [Concomitant]
     Active Substance: METRONIDAZOLE BENZOATE
     Dosage: UNK
     Route: 065
  18. CITALOPRAM [Concomitant]
     Active Substance: CITALOPRAM HYDROBROMIDE
     Dosage: REDUCED TO 20 MG, DAILY
     Route: 048
     Dates: start: 2018
  19. LASIX [Concomitant]
     Active Substance: FUROSEMIDE
     Dosage: 40 MG, DAILY
     Route: 048
     Dates: start: 2018
  20. M-ESLON [Concomitant]
     Active Substance: MORPHINE SULFATE
     Dosage: 30 MG, 2X/DAY
     Route: 048
     Dates: start: 2018
  21. INFLECTRA [Suspect]
     Active Substance: INFLIXIMAB-DYYB
     Dosage: 600 MG (10 MG/KG) RELOAD ON WEEK 0, 2, 6, THEN EVERY 8 WEEKS
     Route: 042
     Dates: start: 20180827
  22. METHOTREXATE. [Concomitant]
     Active Substance: METHOTREXATE
     Dosage: 15 MG, EVERY FRIDAYS
     Route: 058
  23. BUDESONIDE. [Concomitant]
     Active Substance: BUDESONIDE
     Dosage: 6 MG, DAILY
     Route: 048
     Dates: start: 2018, end: 20180823
  24. FOLIC ACID. [Concomitant]
     Active Substance: FOLIC ACID
     Dosage: 2 MG, MONDAY, TUESDAY, WEDNESDAY, THURSDAY, SATURDAY AND SUNDAY
     Route: 048
     Dates: start: 2018
  25. IMODIUM [Concomitant]
     Active Substance: LOPERAMIDE HYDROCHLORIDE
     Dosage: PRN FOR SOCIAL EVENTS
  26. INFLECTRA [Suspect]
     Active Substance: INFLIXIMAB-DYYB
     Dosage: 600 MG (10 MG/KG) RELOAD ON WEEK 0, 2, 6, THEN EVERY 8 WEEKS
     Route: 042
     Dates: start: 20180728
  27. CEFTRIAXONE                        /00672202/ [Concomitant]
     Active Substance: CEFTRIAXONE
     Dosage: UNK
     Route: 065
  28. METHOTREXATE. [Concomitant]
     Active Substance: METHOTREXATE
     Dosage: 15 MG, EVERY FRIDAYS
     Route: 058
  29. PANTOPRAZOLE [Concomitant]
     Active Substance: PANTOPRAZOLE
     Dosage: 40 MG, DAILY
     Route: 048
     Dates: start: 2018

REACTIONS (32)
  - Depression [Not Recovered/Not Resolved]
  - Generalised oedema [Recovering/Resolving]
  - Hypoalbuminaemia [Recovering/Resolving]
  - Headache [Unknown]
  - Drug specific antibody [Unknown]
  - Suicidal behaviour [Unknown]
  - Erythema [Recovering/Resolving]
  - Anxiety [Unknown]
  - Aphthous ulcer [Unknown]
  - Hepatomegaly [Unknown]
  - Intentional product use issue [Unknown]
  - Bipolar disorder [Unknown]
  - Fatigue [Unknown]
  - Intestinal obstruction [Unknown]
  - Compression fracture [Unknown]
  - Abdominal pain [Unknown]
  - Nausea [Unknown]
  - Abdominal pain upper [Unknown]
  - Diplopia [Unknown]
  - Back pain [Unknown]
  - Rash [Not Recovered/Not Resolved]
  - Blood pressure fluctuation [Unknown]
  - Off label use [Unknown]
  - Abscess intestinal [Unknown]
  - Intestinal perforation [Unknown]
  - Vomiting [Unknown]
  - Malaise [Not Recovered/Not Resolved]
  - Drug level below therapeutic [Not Recovered/Not Resolved]
  - Asthenia [Unknown]
  - Condition aggravated [Not Recovered/Not Resolved]
  - Pruritus [Unknown]
  - Prescribed overdose [Unknown]

NARRATIVE: CASE EVENT DATE: 20180611
